FAERS Safety Report 5360631-1 (Version None)
Quarter: 2007Q2

REPORT INFORMATION
  Report Type: 
  Country: None (occurrence: None)
  Receive Date: 20070618
  Receipt Date: 20070606
  Transmission Date: 20071010
  Serious: Yes (Hospitalization)
  Sender: FDA-Public Use
  Company Number: JP-ROCHE-497734

PATIENT
  Age: 4 Year
  Sex: Female
  Weight: 14 kg

DRUGS (5)
  1. TAMIFLU [Suspect]
     Route: 048
     Dates: start: 20070320, end: 20070320
  2. ALIMEZINE [Concomitant]
     Route: 048
     Dates: start: 20070320, end: 20070326
  3. ASVERIN [Concomitant]
     Route: 048
  4. MEPTIN [Concomitant]
     Route: 048
  5. BISOLVON [Concomitant]
     Route: 048

REACTIONS (2)
  - ABNORMAL BEHAVIOUR [None]
  - FEAR [None]
